FAERS Safety Report 5278115-8 (Version None)
Quarter: 2007Q1

REPORT INFORMATION
  Report Type: 
  Country: None (occurrence: None)
  Receive Date: 20061213
  Receipt Date: 20050725
  Transmission Date: 20070707
  Serious: No
  Sender: FDA-Public Use
  Company Number: 2005UW11055

PATIENT
  Age: 35 Year
  Sex: Male

DRUGS (3)
  1. SEROQUEL [Suspect]
     Dosage: 800 MG PO
     Route: 048
     Dates: start: 20050601, end: 20050601
  2. RISPERDAL [Concomitant]
  3. ZOLOFT [Concomitant]

REACTIONS (2)
  - STEREOTYPY [None]
  - TARDIVE DYSKINESIA [None]
